FAERS Safety Report 21341320 (Version 1)
Quarter: 2022Q3

REPORT INFORMATION
  Report Type: Spontaneous
  Country: US (occurrence: US)
  Receive Date: 20220916
  Receipt Date: 20220916
  Transmission Date: 20221027
  Serious: No
  Sender: FDA-Public Use
  Company Number: US-ALVOGEN-2022-ALVOGEN-120417

PATIENT
  Age: 77 Year
  Sex: Female
  Weight: 57.14 kg

DRUGS (3)
  1. CLINDAMYCIN [Suspect]
     Active Substance: CLINDAMYCIN
     Indication: Product used for unknown indication
     Dates: start: 20211109, end: 202111
  2. TREPROSTINIL DIOLAMINE [Suspect]
     Active Substance: TREPROSTINIL DIOLAMINE
     Indication: Pulmonary arterial hypertension
     Route: 048
     Dates: start: 20181113
  3. WARFARIN SODIUM [Concomitant]
     Active Substance: WARFARIN SODIUM
     Indication: Product used for unknown indication

REACTIONS (5)
  - Drug hypersensitivity [Unknown]
  - Vertigo [Unknown]
  - Vomiting [Unknown]
  - Dizziness [Unknown]
  - Eye disorder [Unknown]
